FAERS Safety Report 9264749 (Version 1)
Quarter: 2013Q2

REPORT INFORMATION
  Report Type: Spontaneous
  Country: US (occurrence: None)
  Receive Date: 20130426
  Receipt Date: 20130426
  Transmission Date: 20140414
  Serious: Yes (Life-Threatening, Hospitalization)
  Sender: FDA-Public Use
  Company Number: 2013AO004710

PATIENT
  Age: 36 Year
  Sex: Female
  Weight: 53 kg

DRUGS (7)
  1. DIVALPROEX SODIUM DELAYED-RELEASE TABLETS [Suspect]
     Indication: EPILEPSY
  2. PHENYTOIN [Suspect]
     Indication: EPILEPSY
  3. PHENOBARBITAL SODIUM [Suspect]
     Indication: EPILEPSY
  4. DIPHENHYDRAMINE [Concomitant]
  5. METHLPREDNISOLONE [Concomitant]
  6. CEFTRIAXONE [Concomitant]
  7. VANCOMYCIN [Concomitant]

REACTIONS (3)
  - Drug reaction with eosinophilia and systemic symptoms [None]
  - Liver injury [None]
  - Acute hepatic failure [None]
